FAERS Safety Report 25990016 (Version 1)
Quarter: 2025Q4

REPORT INFORMATION
  Report Type: Spontaneous
  Country: EU (occurrence: EU)
  Receive Date: 20251103
  Receipt Date: 20251103
  Transmission Date: 20260118
  Serious: Yes (Other)
  Sender: REGENERON
  Company Number: None

PATIENT
  Age: 81 Year
  Sex: Female

DRUGS (1)
  1. EYLEA HD [Suspect]
     Active Substance: AFLIBERCEPT
     Indication: Neovascular age-related macular degeneration
     Dosage: 8 MG INJECTIONS 21.8.2025 AND 1.10.2025, SOLUTION FOR INJECTION, 114.3 MG/ML
     Dates: start: 20250821

REACTIONS (3)
  - Vitrectomy [Unknown]
  - Iritis [Unknown]
  - Vitritis [Unknown]

NARRATIVE: CASE EVENT DATE: 20251003
